FAERS Safety Report 8306038-6 (Version None)
Quarter: 2012Q2

REPORT INFORMATION
  Report Type: 
  Country: None (occurrence: None)
  Receive Date: 20120423
  Receipt Date: 20120419
  Transmission Date: 20120825
  Serious: Yes (Hospitalization)
  Sender: FDA-Public Use
  Company Number: CHNY2012AU000551

PATIENT
  Age: 35 Year
  Sex: Male

DRUGS (3)
  1. VALPROATE SODIUM [Concomitant]
     Indication: BIPOLAR DISORDER
     Dosage: 2000 MG, QD
  2. NICOTINE [Suspect]
     Indication: SMOKING CESSATION THERAPY
     Dosage: 21 MG, QD
     Route: 062
     Dates: start: 20110601, end: 20110601
  3. RISPERIDONE [Concomitant]
     Indication: BIPOLAR DISORDER
     Dosage: 6 MG, QD

REACTIONS (8)
  - IRRITABILITY [None]
  - ANGER [None]
  - ELEVATED MOOD [None]
  - PRESSURE OF SPEECH [None]
  - PSYCHOMOTOR HYPERACTIVITY [None]
  - INSOMNIA [None]
  - MANIA [None]
  - AGGRESSION [None]
